FAERS Safety Report 18273364 (Version 1)
Quarter: 2020Q3

REPORT INFORMATION
  Report Type: Spontaneous
  Country: US (occurrence: US)
  Receive Date: 20200916
  Receipt Date: 20200916
  Transmission Date: 20201103
  Serious: No
  Sender: FDA-Public Use
  Company Number: US-THERAPEUTICSMD-2020TMD03267

PATIENT
  Sex: Female
  Weight: 79.37 kg

DRUGS (5)
  1. UNSPECIFIED HIGH BLOOD PRESSURE MEDICATION [Concomitant]
     Active Substance: UNSPECIFIED INGREDIENT
  2. IMVEXXY [Suspect]
     Active Substance: ESTRADIOL
     Indication: ATROPHIC VULVOVAGINITIS
     Dosage: UNK, 2X/WEEK AT BEDTIME
     Route: 067
     Dates: start: 2018, end: 2019
  3. UNSPECIFIED DIABETES MEDICATIONS [Concomitant]
  4. IMVEXXY [Suspect]
     Active Substance: ESTRADIOL
     Dosage: UNK, 1X/DAY AT BEDTIME
     Route: 067
     Dates: start: 202007
  5. IMVEXXY [Suspect]
     Active Substance: ESTRADIOL
     Indication: VULVOVAGINAL DRYNESS
     Dosage: UNK, 1X/DAY AT BEDTIME
     Route: 067
     Dates: start: 2018, end: 2018

REACTIONS (2)
  - Unevaluable event [Recovered/Resolved]
  - Pruritus [Not Recovered/Not Resolved]

NARRATIVE: CASE EVENT DATE: 2018
